FAERS Safety Report 7603882-5 (Version None)
Quarter: 2011Q3

REPORT INFORMATION
  Report Type: 
  Country: None (occurrence: None)
  Receive Date: 20110712
  Receipt Date: 20110711
  Transmission Date: 20111222
  Serious: Yes (Other)
  Sender: FDA-Public Use
  Company Number: US-PFIZER INC-2011156036

PATIENT
  Sex: Female

DRUGS (1)
  1. CHANTIX [Suspect]
     Dosage: UNK
     Route: 048
     Dates: start: 20110701

REACTIONS (6)
  - VOMITING [None]
  - ANGER [None]
  - NAUSEA [None]
  - DEPRESSION [None]
  - ABNORMAL BEHAVIOUR [None]
  - SUICIDAL IDEATION [None]
